FAERS Safety Report 6097369-1 (Version None)
Quarter: 2009Q1

REPORT INFORMATION
  Report Type: 
  Country: None (occurrence: None)
  Receive Date: 20090227
  Receipt Date: 20080130
  Transmission Date: 20090719
  Serious: No
  Sender: FDA-Public Use
  Company Number: A0703373A

PATIENT
  Age: 34 Year
  Sex: Female
  Weight: 100 kg

DRUGS (1)
  1. IMITREX [Suspect]
     Indication: MIGRAINE
     Dosage: 100MG SINGLE DOSE
     Route: 065

REACTIONS (2)
  - CRYING [None]
  - PAIN IN EXTREMITY [None]
